FAERS Safety Report 10148978 (Version 1)
Quarter: 2014Q2

REPORT INFORMATION
  Report Type: Spontaneous
  Country: US (occurrence: US)
  Receive Date: 20140502
  Receipt Date: 20140502
  Transmission Date: 20141212
  Serious: Yes (Hospitalization)
  Sender: FDA-Public Use
  Company Number: US-BRISTOL-MYERS SQUIBB COMPANY-20673000

PATIENT
  Age: 71 Year
  Sex: Female
  Weight: 73.92 kg

DRUGS (13)
  1. BYDUREON [Suspect]
     Indication: TYPE 2 DIABETES MELLITUS
     Route: 058
     Dates: start: 201311
  2. NEXIUM [Concomitant]
  3. GLIPIZIDE [Concomitant]
  4. METFORMIN HCL [Concomitant]
  5. DETROL LA [Concomitant]
  6. VITAMIN C [Concomitant]
  7. CALCIUM + VITAMIN D [Concomitant]
  8. FISH OIL [Concomitant]
  9. VYTORIN [Concomitant]
  10. ASPIRIN [Concomitant]
  11. MICARDIS [Concomitant]
     Dosage: 1DF=10/40MG
  12. SINGULAIR [Concomitant]
     Indication: ASTHMA
  13. ADVAIR [Concomitant]
     Indication: ASTHMA

REACTIONS (4)
  - Cardiac pacemaker insertion [Unknown]
  - Fatigue [Unknown]
  - Vertigo [Unknown]
  - Weight decreased [Unknown]
